FAERS Safety Report 7402378-3 (Version None)
Quarter: 2011Q1

REPORT INFORMATION
  Report Type: 
  Country: None (occurrence: None)
  Receive Date: 20110331
  Receipt Date: 20110322
  Transmission Date: 20110831
  Serious: Yes (Life-Threatening)
  Sender: FDA-Public Use
  Company Number: IDA-00516

PATIENT
  Age: 76 Year
  Sex: Female

DRUGS (11)
  1. INDERAL [Suspect]
     Indication: ESSENTIAL TREMOR
     Dosage: 10 MG, DAILY, ORAL
     Route: 048
     Dates: end: 20110208
  2. AMOXICILLIN SODIUM W/CLAVULANATE POTASSIUM (AMOXICILLIN, CLVULANIC ACI [Suspect]
     Indication: BRONCHITIS
     Dosage: ORAL
     Route: 048
     Dates: start: 20110206, end: 20110207
  3. BISOPROLOL FUMARATE [Suspect]
     Indication: HYPERTENSION
     Dosage: 5 MG, QD, ORAL
     Route: 048
     Dates: end: 20110208
  4. HUMALOG [Concomitant]
  5. DURAGESIC-100 [Concomitant]
  6. ASPIRIN [Concomitant]
  7. DIAMICRON (GLICLAZIDE) [Concomitant]
  8. ALLOPURINOL [Concomitant]
  9. ATACAND [Concomitant]
  10. METFIN (METFORMIN HYDROCHLORIDE) [Concomitant]
  11. ATACAND [Concomitant]

REACTIONS (7)
  - BUNDLE BRANCH BLOCK LEFT [None]
  - MALAISE [None]
  - SYNCOPE [None]
  - ATRIOVENTRICULAR BLOCK [None]
  - FALL [None]
  - CONVULSION [None]
  - SINOATRIAL BLOCK [None]
